FAERS Safety Report 5176527-4 (Version None)
Quarter: 2006Q4

REPORT INFORMATION
  Report Type: 
  Country: None (occurrence: None)
  Receive Date: 20061215
  Receipt Date: 20061101
  Transmission Date: 20070319
  Serious: Yes (Death, Life-Threatening, Other)
  Sender: FDA-Public Use
  Company Number: US-PURDUE-USA_2006_0025579

PATIENT
  Age: 44 Year
  Sex: Male
  Weight: 75 kg

DRUGS (3)
  1. MORPHINE SULFATE [Suspect]
     Indication: DRUG ABUSER
  2. OXYCODONE HYDROCHLORIDE [Suspect]
     Indication: DRUG ABUSER
  3. COCAINE [Suspect]
     Indication: DRUG ABUSER

REACTIONS (8)
  - AGGRESSION [None]
  - CARDIO-RESPIRATORY ARREST [None]
  - DELIRIUM [None]
  - EXCORIATION [None]
  - INCOHERENT [None]
  - MULTIPLE DRUG OVERDOSE [None]
  - SUBSTANCE ABUSE [None]
  - THEFT [None]
